FAERS Safety Report 9377459 (Version 1)
Quarter: 2013Q3

REPORT INFORMATION
  Report Type: Spontaneous
  Country: CN (occurrence: CN)
  Receive Date: 20130701
  Receipt Date: 20130701
  Transmission Date: 20140515
  Serious: Yes (Hospitalization, Other)
  Sender: FDA-Public Use
  Company Number: CN-JNJFOC-20130618172

PATIENT
  Age: 16 Year
  Sex: Male

DRUGS (4)
  1. RISPERDAL [Suspect]
     Indication: SCHIZOPHRENIA
     Route: 048
     Dates: end: 20111117
  2. RISPERDAL [Suspect]
     Indication: SCHIZOPHRENIA
     Route: 048
     Dates: start: 20111025
  3. ARTANE [Suspect]
     Indication: SCHIZOPHRENIA
     Route: 065
     Dates: start: 20111025
  4. ARTANE [Suspect]
     Indication: SCHIZOPHRENIA
     Route: 065

REACTIONS (6)
  - Abnormal behaviour [Recovering/Resolving]
  - Blood prolactin increased [Recovering/Resolving]
  - Aspartate aminotransferase increased [Recovering/Resolving]
  - Alanine aminotransferase increased [Recovering/Resolving]
  - Hypertonia [Recovered/Resolved]
  - Dysuria [Recovered/Resolved]
